FAERS Safety Report 13551645 (Version 1)
Quarter: 2017Q2

REPORT INFORMATION
  Report Type: Spontaneous
  Country: BG (occurrence: BG)
  Receive Date: 20170516
  Receipt Date: 20170516
  Transmission Date: 20170830
  Serious: Yes (Other)
  Sender: FDA-Public Use
  Company Number: BG-BRISTOL-MYERS SQUIBB COMPANY-BMS-2017-042422

PATIENT

DRUGS (1)
  1. METFORMIN HYDROCHLORIDE. [Suspect]
     Active Substance: METFORMIN HYDROCHLORIDE
     Indication: DIABETES MELLITUS
     Route: 065

REACTIONS (3)
  - Toxicity to various agents [Unknown]
  - Suicide attempt [Unknown]
  - Lactic acidosis [Unknown]
